FAERS Safety Report 5959850-2 (Version None)
Quarter: 2008Q4

REPORT INFORMATION
  Report Type: 
  Country: None (occurrence: None)
  Receive Date: 20081120
  Receipt Date: 20081114
  Transmission Date: 20090506
  Serious: Yes (Hospitalization)
  Sender: FDA-Public Use
  Company Number: B0546659A

PATIENT
  Age: 46 Year
  Sex: Female
  Weight: 88 kg

DRUGS (7)
  1. AUGMENTIN '125' [Suspect]
     Indication: RESPIRATORY TRACT INFECTION
     Route: 048
     Dates: start: 20080929, end: 20081004
  2. KEFZOL [Suspect]
     Indication: NEPHRECTOMY
     Dosage: 1G SINGLE DOSE
     Route: 042
     Dates: start: 20081005
  3. AMOXICILLIN [Suspect]
     Dosage: 500MG PER DAY
     Route: 065
     Dates: start: 20080929, end: 20081004
  4. NEURONTIN [Concomitant]
     Dosage: 300MG THREE TIMES PER DAY
     Route: 048
     Dates: start: 20020101
  5. ALFACALCIDOL [Concomitant]
     Dosage: .25MCG PER DAY
     Route: 048
     Dates: start: 20060101
  6. RENAGEL [Concomitant]
     Dosage: 1600MG THREE TIMES PER DAY
     Route: 048
     Dates: start: 20060101
  7. ACETAMINOPHEN [Concomitant]
     Dosage: 1000MG FOUR TIMES PER DAY
     Route: 048
     Dates: start: 20081007, end: 20081012

REACTIONS (1)
  - JAUNDICE [None]
